FAERS Safety Report 10867645 (Version 2)
Quarter: 2015Q1

REPORT INFORMATION
  Report Type: Report from Study
  Country: CO (occurrence: CO)
  Receive Date: 20150225
  Receipt Date: 20150303
  Transmission Date: 20150721
  Serious: Yes (Death)
  Sender: FDA-Public Use
  Company Number: CO-ASTRAZENECA-2015SE17204

PATIENT
  Age: 25768 Day
  Sex: Female

DRUGS (8)
  1. LOSARTAN [Concomitant]
     Active Substance: LOSARTAN
  2. ATORVASTATIN [Concomitant]
     Active Substance: ATORVASTATIN
  3. CLOPIDOGREL [Suspect]
     Active Substance: CLOPIDOGREL BISULFATE
     Route: 065
  4. BRILINTA [Suspect]
     Active Substance: TICAGRELOR
     Indication: INFARCTION
     Route: 048
     Dates: start: 20141202, end: 20141222
  5. CARVEDILOL. [Concomitant]
     Active Substance: CARVEDILOL
     Dosage: EVERY 12 HOURS
  6. FUROSEMIDE. [Concomitant]
     Active Substance: FUROSEMIDE
  7. OMEPRAZOLE. [Concomitant]
     Active Substance: OMEPRAZOLE
  8. ASA [Concomitant]
     Active Substance: ASPIRIN

REACTIONS (1)
  - Myocardial infarction [Fatal]

NARRATIVE: CASE EVENT DATE: 20150122
